FAERS Safety Report 17068849 (Version 2)
Quarter: 2019Q4

REPORT INFORMATION
  Report Type: Spontaneous
  Country: SI (occurrence: SI)
  Receive Date: 20191124
  Receipt Date: 20191212
  Transmission Date: 20200122
  Serious: Yes (Death, Other)
  Sender: FDA-Public Use
  Company Number: SI-UNITED THERAPEUTICS-UNT-2019-019487

PATIENT

DRUGS (16)
  1. ARTERENOL [Concomitant]
     Active Substance: NOREPINEPHRINE HYDROCHLORIDE, (+/-)-
     Indication: PRODUCT USED FOR UNKNOWN INDICATION
     Dosage: 5 ML/H (10 MG TO 50 ML)
     Route: 065
  2. TAZOCIN [Concomitant]
     Active Substance: PIPERACILLIN SODIUM\TAZOBACTAM SODIUM
     Indication: PRODUCT USED FOR UNKNOWN INDICATION
     Dosage: 2.25 MG, Q8H
     Route: 065
  3. TORECAN [Concomitant]
     Active Substance: THIETHYLPERAZINE MALATE
     Indication: PRODUCT USED FOR UNKNOWN INDICATION
     Dosage: 1 AMP, PRN (IF NEEDED, UP TO 3X)
     Route: 042
  4. KVENTIAX [Concomitant]
     Active Substance: QUETIAPINE FUMARATE
     Indication: PRODUCT USED FOR UNKNOWN INDICATION
     Dosage: 25 MG, PRN (IF NEEDED)
     Route: 065
  5. DORETA [Concomitant]
     Active Substance: ACETAMINOPHEN\TRAMADOL HYDROCHLORIDE
     Indication: PRODUCT USED FOR UNKNOWN INDICATION
     Dosage: 3X2 TABLET
     Route: 065
  6. PIRITRAMIDE [Concomitant]
     Active Substance: PIRITRAMIDE
     Indication: PRODUCT USED FOR UNKNOWN INDICATION
     Dosage: 4 MG, PRN (IF NEEDED, UP TO 5X)
     Route: 065
  7. FRAXIPARINE [Concomitant]
     Active Substance: NADROPARIN CALCIUM
     Indication: PRODUCT USED FOR UNKNOWN INDICATION
     Dosage: 0.6 ML, Q12H
     Route: 065
  8. NEPHROTRANS [Concomitant]
     Active Substance: SODIUM BICARBONATE
     Indication: PRODUCT USED FOR UNKNOWN INDICATION
     Dosage: 500 MG, Q12H
     Route: 065
  9. VOLIBRIS [Concomitant]
     Active Substance: AMBRISENTAN
     Indication: PRODUCT USED FOR UNKNOWN INDICATION
     Dosage: 5 MG/24H
     Route: 065
  10. EUTHYROX [Concomitant]
     Active Substance: LEVOTHYROXINE SODIUM
     Indication: PRODUCT USED FOR UNKNOWN INDICATION
     Dosage: 150 MCG/24H; (125 MCG AT WEEKEND)
     Route: 065
  11. VANCOMYCIN [Concomitant]
     Active Substance: VANCOMYCIN
     Indication: PRODUCT USED FOR UNKNOWN INDICATION
     Dosage: (DEPENDING ON LEVEL)
     Route: 065
  12. REMODULIN [Suspect]
     Active Substance: TREPROSTINIL
     Indication: PULMONARY ARTERIAL HYPERTENSION
     Dosage: 0.022 ML/H, CONTINUING
     Route: 058
     Dates: start: 201309, end: 201911
  13. SILDENAFIL. [Concomitant]
     Active Substance: SILDENAFIL
     Indication: PRODUCT USED FOR UNKNOWN INDICATION
     Dosage: 20 MG, Q8H
     Route: 065
  14. CORDARONE [Concomitant]
     Active Substance: AMIODARONE HYDROCHLORIDE
     Indication: PRODUCT USED FOR UNKNOWN INDICATION
     Dosage: 200 MG, Q12H
     Route: 065
  15. BERODUAL INHALATION SOLUTION [Concomitant]
     Indication: PRODUCT USED FOR UNKNOWN INDICATION
     Dosage: UNK, PRN (IF NEEDED)
  16. EDEMID [Concomitant]
     Active Substance: FUROSEMIDE
     Indication: PRODUCT USED FOR UNKNOWN INDICATION
     Dosage: 500 MG/24H (INFUSION)
     Route: 065

REACTIONS (10)
  - Disease progression [Fatal]
  - Respiratory tract infection [Unknown]
  - Pericardial effusion [Fatal]
  - Fluid retention [Unknown]
  - Renal failure [Unknown]
  - Cardiac failure [Unknown]
  - Hypoalbuminaemia [Unknown]
  - Sepsis [Unknown]
  - Pneumothorax [Unknown]
  - Cardiac tamponade [Unknown]

NARRATIVE: CASE EVENT DATE: 2019
